FAERS Safety Report 5023662-7 (Version None)
Quarter: 2006Q2

REPORT INFORMATION
  Report Type: 
  Country: None (occurrence: None)
  Receive Date: 20060606
  Receipt Date: 20060522
  Transmission Date: 20061013
  Serious: Yes (Death, Hospitalization, Other)
  Sender: FDA-Public Use
  Company Number: HQWYE567906OCT04

PATIENT
  Age: 63 Year
  Sex: Female
  Weight: 97.16 kg

DRUGS (2)
  1. PREMARIN [Suspect]
     Indication: HORMONE REPLACEMENT THERAPY
  2. MEDROXYPROGESTERONE [Suspect]

REACTIONS (16)
  - APPENDICECTOMY [None]
  - BREAST MICROCALCIFICATION [None]
  - DEHYDRATION [None]
  - DIABETIC NEUROPATHY [None]
  - DISEASE PROGRESSION [None]
  - GASTROINTESTINAL DISORDER [None]
  - HYDRONEPHROSIS [None]
  - HYPERKALAEMIA [None]
  - HYPERTENSION [None]
  - LUNG INFILTRATION [None]
  - METASTASES TO GASTROINTESTINAL TRACT [None]
  - METASTASES TO PERITONEUM [None]
  - OMENTECTOMY [None]
  - OVARIAN CANCER METASTATIC [None]
  - RENAL FAILURE [None]
  - THERAPY NON-RESPONDER [None]
